FAERS Safety Report 15600736 (Version 1)
Quarter: 2018Q4

REPORT INFORMATION
  Report Type: Spontaneous
  Country: US (occurrence: US)
  Receive Date: 20181109
  Receipt Date: 20181109
  Transmission Date: 20190205
  Serious: Yes (Hospitalization, Disabling)
  Sender: FDA-Public Use
  Company Number: US-ASTRAZENECA-2018SF45014

PATIENT
  Sex: Male

DRUGS (1)
  1. SYMBICORT [Suspect]
     Active Substance: BUDESONIDE\FORMOTEROL FUMARATE DIHYDRATE
     Indication: CHRONIC OBSTRUCTIVE PULMONARY DISEASE
     Route: 055

REACTIONS (7)
  - Therapy cessation [Unknown]
  - Chest pain [Unknown]
  - Disability [Unknown]
  - Bronchitis [Unknown]
  - Dyspnoea [Unknown]
  - Product dose omission [Unknown]
  - Throat tightness [Unknown]

NARRATIVE: CASE EVENT DATE: 2018
